FAERS Safety Report 10506109 (Version 1)
Quarter: 2014Q4

REPORT INFORMATION
  Report Type: Spontaneous
  Country: US (occurrence: US)
  Receive Date: 20141008
  Receipt Date: 20141008
  Transmission Date: 20150528
  Serious: Yes (Hospitalization, Other)
  Sender: FDA-Public Use
  Company Number: US-AMGEN-USASP2014076343

PATIENT
  Age: 84 Year
  Sex: Female

DRUGS (4)
  1. FOLIC ACID ALMUS [Concomitant]
     Dosage: 1 MG, QD
  2. NPLATE [Suspect]
     Active Substance: ROMIPLOSTIM
     Indication: IMMUNE THROMBOCYTOPENIC PURPURA
     Dosage: 70 MUG (1.2 MCG/KG), QWK
     Route: 065
     Dates: start: 201108
  3. COUMADIN [Concomitant]
     Active Substance: WARFARIN SODIUM
     Dosage: UNK
  4. PREDNISONE. [Concomitant]
     Active Substance: PREDNISONE
     Dosage: 20 MG, QD

REACTIONS (2)
  - Platelet count increased [Unknown]
  - Cerebrovascular disorder [Unknown]
